FAERS Safety Report 4308794-0 (Version None)
Quarter: 2004Q1

REPORT INFORMATION
  Report Type: 
  Country: None (occurrence: None)
  Receive Date: 20040227
  Receipt Date: 20040223
  Transmission Date: 20041129
  Serious: Yes (Death)
  Sender: FDA-Public Use
  Company Number: USA-2004-0013323

PATIENT
  Sex: Female

DRUGS (3)
  1. OXYCODONE HCL [Suspect]
  2. MIRTAZAPINE [Suspect]
  3. CITALOPRAM (CITALOPRAM) [Suspect]

REACTIONS (1)
  - PNEUMONIA [None]
